FAERS Safety Report 18335458 (Version 4)
Quarter: 2020Q4

REPORT INFORMATION
  Report Type: Report from Study
  Country: US (occurrence: US)
  Receive Date: 20201001
  Receipt Date: 20201111
  Transmission Date: 20210113
  Serious: Yes (Hospitalization)
  Sender: FDA-Public Use
  Company Number: NVSC2020US258927

PATIENT
  Age: 50 Year
  Sex: Female

DRUGS (3)
  1. COSENTYX [Suspect]
     Active Substance: SECUKINUMAB
     Indication: PSORIASIS
     Dosage: UNK
     Route: 065
  2. COSENTYX [Suspect]
     Active Substance: SECUKINUMAB
     Dosage: 300 MG, QMO
     Route: 003
     Dates: start: 20200921, end: 20200922
  3. COSENTYX [Suspect]
     Active Substance: SECUKINUMAB
     Dosage: 300 MG, QMO
     Route: 058
     Dates: start: 201906, end: 202009

REACTIONS (8)
  - Lip swelling [Recovered/Resolved]
  - Swelling face [Recovered/Resolved]
  - Type I hypersensitivity [Recovered/Resolved]
  - Dysphagia [Recovered/Resolved]
  - Swelling [Recovered/Resolved]
  - Swollen tongue [Recovered/Resolved]
  - Oropharyngeal swelling [Recovered/Resolved]
  - Incorrect route of product administration [Unknown]

NARRATIVE: CASE EVENT DATE: 20200921
